FAERS Safety Report 13331199 (Version 2)
Quarter: 2017Q2

REPORT INFORMATION
  Report Type: Spontaneous
  Country: CA (occurrence: CA)
  Receive Date: 20170313
  Receipt Date: 20170428
  Transmission Date: 20170830
  Serious: Yes (Hospitalization)
  Sender: FDA-Public Use
  Company Number: CA-PFIZER INC-2017103924

PATIENT
  Age: 58 Year
  Sex: Female

DRUGS (1)
  1. XELJANZ [Suspect]
     Active Substance: TOFACITINIB CITRATE
     Indication: RHEUMATOID ARTHRITIS
     Dosage: 5 MG, 2X/DAY
     Route: 048
     Dates: start: 20161213

REACTIONS (5)
  - Laboratory test abnormal [Unknown]
  - Thrombosis [Unknown]
  - Peripheral swelling [Unknown]
  - Musculoskeletal pain [Unknown]
  - Rash [Unknown]

NARRATIVE: CASE EVENT DATE: 2017
